FAERS Safety Report 9817765 (Version 1)
Quarter: 2014Q1

REPORT INFORMATION
  Report Type: Spontaneous
  Country: US (occurrence: None)
  Receive Date: 20140110
  Receipt Date: 20140110
  Transmission Date: 20141002
  Serious: Yes (Life-Threatening, Hospitalization)
  Sender: FDA-Public Use
  Company Number: None

PATIENT
  Age: 54 Year
  Sex: Male
  Weight: 76 kg

DRUGS (4)
  1. JANUVIA 100 MG MERCK [Suspect]
     Indication: DIABETES MELLITUS
     Dosage: 1 QD ORAL
     Route: 048
  2. PRECOSE [Concomitant]
  3. GLIPIZIDE [Concomitant]
  4. WELCHOL [Concomitant]

REACTIONS (6)
  - Iron deficiency anaemia [None]
  - Duodenal obstruction [None]
  - Duodenal ulcer [None]
  - Bezoar [None]
  - Pancreatitis [None]
  - Computerised tomogram abnormal [None]
